FAERS Safety Report 16028388 (Version 1)
Quarter: 2019Q1

REPORT INFORMATION
  Report Type: Spontaneous
  Country: US (occurrence: US)
  Receive Date: 20190304
  Receipt Date: 20190304
  Transmission Date: 20190418
  Serious: No
  Sender: FDA-Public Use
  Company Number: US-BAUSCH-BL-2019-005491

PATIENT
  Sex: Female

DRUGS (3)
  1. ATIVAN [Suspect]
     Active Substance: LORAZEPAM
     Route: 065
  2. ATIVAN [Suspect]
     Active Substance: LORAZEPAM
     Indication: PRODUCT USED FOR UNKNOWN INDICATION
     Dosage: FOR 16 YEARS
     Route: 065
  3. ATIVAN [Suspect]
     Active Substance: LORAZEPAM
     Dosage: DOSE REDUCED OVER THE LAST 4 OR 3 YEARS
     Route: 065

REACTIONS (6)
  - Ill-defined disorder [Not Recovered/Not Resolved]
  - Drug dependence [Not Recovered/Not Resolved]
  - Maternal exposure during pregnancy [Unknown]
  - Quality of life decreased [Not Recovered/Not Resolved]
  - Intentional product use issue [Unknown]
  - Product availability issue [Unknown]
